FAERS Safety Report 4571744-6 (Version None)
Quarter: 2005Q1

REPORT INFORMATION
  Report Type: 
  Country: None (occurrence: None)
  Receive Date: 20050202
  Receipt Date: 20050202
  Transmission Date: 20050727
  Serious: Yes (Other)
  Sender: FDA-Public Use
  Company Number: None

PATIENT
  Age: 57 Year
  Sex: Female
  Weight: 79.9 kg

DRUGS (1)
  1. WARFARIN SODIUM [Suspect]
     Dosage: 4MG   DAILY   ORAL
     Route: 048

REACTIONS (4)
  - COAGULOPATHY [None]
  - CONSTIPATION [None]
  - GENERAL PHYSICAL HEALTH DETERIORATION [None]
  - RESPIRATORY FAILURE [None]
